FAERS Safety Report 13559473 (Version 5)
Quarter: 2017Q3

REPORT INFORMATION
  Report Type: Report from Study
  Country: US (occurrence: US)
  Receive Date: 20170518
  Receipt Date: 20170710
  Transmission Date: 20171127
  Serious: Yes (Death, Hospitalization, Other)
  Sender: FDA-Public Use
  Company Number: US-AMGEN-USASP2017072381

PATIENT
  Age: 64 Year
  Sex: Female

DRUGS (2)
  1. ENBREL [Suspect]
     Active Substance: ETANERCEPT
     Indication: PSORIATIC ARTHROPATHY
     Dosage: 25 MG, 2 TIMES/WK
     Route: 058
     Dates: start: 20151111
  2. ENBREL [Suspect]
     Active Substance: ETANERCEPT
     Indication: PSORIASIS
     Dosage: 50 MG, 2 TIMES/WK
     Route: 058
     Dates: start: 201701, end: 201704

REACTIONS (24)
  - Catheter site haemorrhage [Unknown]
  - Heart rate increased [Unknown]
  - Body temperature increased [Unknown]
  - Guillain-Barre syndrome [Fatal]
  - Post procedural haemorrhage [Unknown]
  - Blood urine present [Unknown]
  - Influenza like illness [Unknown]
  - Demyelination [Unknown]
  - Mouth haemorrhage [Unknown]
  - Drug effect decreased [Unknown]
  - Memory impairment [Unknown]
  - Pneumonia [Unknown]
  - Headache [Unknown]
  - Blood glucose increased [Unknown]
  - Oxygen saturation decreased [Unknown]
  - Epistaxis [Unknown]
  - Dehydration [Unknown]
  - Blood pressure decreased [Unknown]
  - Urinary tract infection [Unknown]
  - Platelet count decreased [Unknown]
  - White blood cell disorder [Unknown]
  - Pain [Unknown]
  - Off label use [Unknown]
  - Oropharyngeal pain [Unknown]

NARRATIVE: CASE EVENT DATE: 2017
